FAERS Safety Report 4469366-0 (Version None)
Quarter: 2004Q4

REPORT INFORMATION
  Report Type: 
  Country: None (occurrence: None)
  Receive Date: 20041008
  Receipt Date: 20040216
  Transmission Date: 20050328
  Serious: No
  Sender: FDA-Public Use
  Company Number: US-BRISTOL-MYERS SQUIBB COMPANY-12532743

PATIENT
  Age: 72 Year
  Sex: Male

DRUGS (9)
  1. APROVEL TABS 75 MG [Suspect]
     Route: 048
     Dates: start: 20040112, end: 20040130
  2. APROVEL TABS 300 MG [Suspect]
     Route: 048
     Dates: start: 20040130
  3. AMLOR [Concomitant]
  4. MOPRAL [Concomitant]
  5. LASILIX [Concomitant]
  6. ZYRTEC [Concomitant]
  7. CALCIUM [Concomitant]
  8. VITAMIN D3 [Concomitant]
  9. RIVOTRIL [Concomitant]

REACTIONS (2)
  - BLOOD PRESSURE INCREASED [None]
  - DYSPEPSIA [None]
